FAERS Safety Report 7418221-2 (Version None)
Quarter: 2011Q2

REPORT INFORMATION
  Report Type: 
  Country: None (occurrence: None)
  Receive Date: 20110407
  Receipt Date: 20110325
  Transmission Date: 20111010
  Serious: Yes (Hospitalization)
  Sender: FDA-Public Use
  Company Number: 030077

PATIENT
  Age: 59 Year
  Sex: Female

DRUGS (3)
  1. KEPPRA [Suspect]
     Dosage: (500 MG BID ORAL)
     Route: 048
  2. LASIX [Concomitant]
  3. DAFALGAN /00020001/ [Concomitant]

REACTIONS (2)
  - THROMBOCYTOPENIA [None]
  - AGRANULOCYTOSIS [None]
